FAERS Safety Report 5288407-4 (Version None)
Quarter: 2007Q2

REPORT INFORMATION
  Report Type: 
  Country: None (occurrence: None)
  Receive Date: 20070405
  Receipt Date: 20070330
  Transmission Date: 20071010
  Serious: Yes (Hospitalization)
  Sender: FDA-Public Use
  Company Number: 2007SE01796

PATIENT
  Age: 80 Year
  Sex: Male

DRUGS (10)
  1. BLOPRESS [Suspect]
     Indication: HYPERTENSION
     Route: 048
     Dates: start: 20031001, end: 20070305
  2. LIPOVAS [Suspect]
     Route: 048
  3. ADALAT [Concomitant]
     Route: 048
  4. MEILAX [Concomitant]
     Route: 048
     Dates: end: 20031216
  5. MEILAX [Concomitant]
     Route: 048
     Dates: start: 20031217
  6. PARIET [Concomitant]
     Route: 048
     Dates: start: 20041216
  7. PURSENNID [Concomitant]
     Route: 048
  8. PALNAC [Concomitant]
     Route: 048
     Dates: start: 20060623, end: 20070202
  9. VESICARE [Concomitant]
     Route: 048
     Dates: start: 20060707, end: 20061121
  10. VANCOMIC [Concomitant]
     Route: 048
     Dates: start: 20061219, end: 20070202

REACTIONS (2)
  - GAIT DISTURBANCE [None]
  - PYREXIA [None]
